FAERS Safety Report 6720426-0 (Version None)
Quarter: 2010Q2

REPORT INFORMATION
  Report Type: 
  Country: None (occurrence: None)
  Receive Date: 20100511
  Receipt Date: 20100430
  Transmission Date: 20101027
  Serious: Yes (Other)
  Sender: FDA-Public Use
  Company Number: US-CELGENEUS-163-20785-10050124

PATIENT
  Sex: Female

DRUGS (3)
  1. THALOMID [Suspect]
     Route: 048
     Dates: start: 20100301, end: 20100101
  2. THALOMID [Suspect]
     Route: 048
     Dates: start: 20090501, end: 20091201
  3. THALOMID [Suspect]
     Route: 048
     Dates: start: 20090401, end: 20090501

REACTIONS (1)
  - VIITH NERVE INJURY [None]
